FAERS Safety Report 13619317 (Version 2)
Quarter: 2017Q2

REPORT INFORMATION
  Report Type: Spontaneous
  Country: US (occurrence: US)
  Receive Date: 20170606
  Receipt Date: 20170607
  Transmission Date: 20170830
  Serious: No
  Sender: FDA-Public Use
  Company Number: US-PURDUE-USA-2016-0131222

PATIENT
  Sex: Male
  Weight: 81.63 kg

DRUGS (2)
  1. BUTRANS [Suspect]
     Active Substance: BUPRENORPHINE
     Indication: PAIN
  2. BUTRANS [Suspect]
     Active Substance: BUPRENORPHINE
     Indication: ANALGESIC THERAPY
     Dosage: 15 MCG/HR, WEEKLY
     Route: 062
     Dates: start: 20160415, end: 20160615

REACTIONS (3)
  - Inappropriate schedule of drug administration [Recovered/Resolved]
  - Inadequate analgesia [Recovered/Resolved]
  - Drug withdrawal syndrome [Recovered/Resolved]
